FAERS Safety Report 11233438 (Version 2)
Quarter: 2015Q3

REPORT INFORMATION
  Report Type: Spontaneous
  Country: AU (occurrence: AU)
  Receive Date: 20150702
  Receipt Date: 20150710
  Transmission Date: 20151125
  Serious: Yes (Other)
  Sender: FDA-Public Use
  Company Number: AU-AUROBINDO-AUR-APL-2015-05596

PATIENT
  Age: 37 Year
  Sex: Female

DRUGS (1)
  1. QUETIAPINE FILM-COATED TABLET [Suspect]
     Active Substance: QUETIAPINE
     Indication: BIPOLAR DISORDER
     Dosage: 700 MG, UNK
     Route: 065

REACTIONS (3)
  - Gestational hypertension [Unknown]
  - Abnormal weight gain [Unknown]
  - Exposure during pregnancy [Unknown]
